FAERS Safety Report 12448910 (Version 1)
Quarter: 2016Q2

REPORT INFORMATION
  Report Type: Spontaneous
  Country: IT (occurrence: IT)
  Receive Date: 20160608
  Receipt Date: 20160608
  Transmission Date: 20160815
  Serious: Yes (Hospitalization)
  Sender: FDA-Public Use
  Company Number: IT-TEVA-666259ACC

PATIENT
  Age: 72 Year
  Sex: Male

DRUGS (1)
  1. DILTIAZEM [Suspect]
     Active Substance: DILTIAZEM
     Indication: MYOCARDIAL ISCHAEMIA
     Dosage: 120 MILLIGRAM DAILY; 120 MG DAILY
     Route: 048
     Dates: start: 20160131, end: 20160201

REACTIONS (1)
  - Atrioventricular block second degree [Unknown]

NARRATIVE: CASE EVENT DATE: 20160131
